FAERS Safety Report 13703512 (Version 1)
Quarter: 2017Q2

REPORT INFORMATION
  Report Type: Spontaneous
  Country: ES (occurrence: ES)
  Receive Date: 20170629
  Receipt Date: 20170629
  Transmission Date: 20170830
  Serious: Yes (Hospitalization)
  Sender: FDA-Public Use
  Company Number: ES-IMPAX LABORATORIES, INC-2017-IPXL-01919

PATIENT
  Age: 53 Year
  Sex: Female

DRUGS (1)
  1. DIGOXIN. [Suspect]
     Active Substance: DIGOXIN
     Indication: SUICIDE ATTEMPT
     Dosage: 30 MG, UNK
     Route: 065

REACTIONS (7)
  - Somnolence [Unknown]
  - Vomiting [Unknown]
  - Atrial flutter [Recovered/Resolved]
  - Suicide attempt [Recovered/Resolved]
  - Road traffic accident [Unknown]
  - Multiple injuries [Unknown]
  - Intentional overdose [Recovered/Resolved]
